FAERS Safety Report 19468283 (Version 2)
Quarter: 2021Q2

REPORT INFORMATION
  Report Type: Spontaneous
  Country: US (occurrence: US)
  Receive Date: 20210628
  Receipt Date: 20210628
  Transmission Date: 20210717
  Serious: Yes (Other)
  Sender: FDA-Public Use
  Company Number: US-PFIZER INC-2021708674

PATIENT
  Age: 53 Year
  Sex: Male

DRUGS (17)
  1. LIDOCAINE HCL [Suspect]
     Active Substance: LIDOCAINE HYDROCHLORIDE
     Dosage: 100 MG (1.2 MG/KG)
     Route: 042
  2. CAPTOPRIL. [Concomitant]
     Active Substance: CAPTOPRIL
     Dosage: 25 MG, 3X/DAY
     Route: 048
  3. FUROSEMIDE. [Concomitant]
     Active Substance: FUROSEMIDE
     Dosage: 40 MG, 2X/DAY
     Route: 048
  4. LIDOCAINE HCL [Suspect]
     Active Substance: LIDOCAINE HYDROCHLORIDE
     Indication: VENTRICULAR TACHYCARDIA
     Dosage: 80 MG (1 MG/KG)
  5. PROCAINAMIDE HCL [Suspect]
     Active Substance: PROCAINAMIDE HYDROCHLORIDE
     Dosage: 1250 MG, 4X/DAY
  6. MEXILETINE [Suspect]
     Active Substance: MEXILETINE
     Indication: VENTRICULAR TACHYCARDIA
     Dosage: 200 MG, 3X/DAY
     Route: 048
  7. MEXILETINE [Suspect]
     Active Substance: MEXILETINE
     Dosage: 400 MG, 3X/DAY (ON DAY 5)
     Route: 048
  8. DIGOXIN. [Concomitant]
     Active Substance: DIGOXIN
     Dosage: 0.125 MG, DAILY
     Route: 048
  9. LIDOCAINE HCL [Suspect]
     Active Substance: LIDOCAINE HYDROCHLORIDE
     Dosage: UNK (2 MG/ MIN (24 UG.KG^?1.MIN^?1) INFUSION)
  10. MEXILETINE [Suspect]
     Active Substance: MEXILETINE
     Dosage: 300 MG, 3X/DAY
     Route: 048
  11. PROCAINAMIDE HCL [Suspect]
     Active Substance: PROCAINAMIDE HYDROCHLORIDE
     Dosage: 1500 MG, 4X/DAY (INCREASED)
  12. PROCAINAMIDE HCL [Suspect]
     Active Substance: PROCAINAMIDE HYDROCHLORIDE
     Dosage: 1250 MG, 4X/DAY (REDUCED)
  13. MEXILETINE [Suspect]
     Active Substance: MEXILETINE
     Dosage: 200 MG, 3X/DAY (ON DAY 8)
     Route: 048
  14. POTASSIUM CHLORIDE. [Concomitant]
     Active Substance: POTASSIUM CHLORIDE
     Dosage: 10 MEQ, 2X/DAY
     Route: 048
  15. LIDOCAINE HCL [Suspect]
     Active Substance: LIDOCAINE HYDROCHLORIDE
     Dosage: 2 MG (MAINTENANCE INFUSION OF 2 MG/MIN)
  16. PROCAINAMIDE HCL [Suspect]
     Active Substance: PROCAINAMIDE HYDROCHLORIDE
     Indication: VENTRICULAR TACHYCARDIA
     Dosage: 1250 MG, 4X/DAY (SUSTAINED RELEASE)
  17. WARFARIN [Concomitant]
     Active Substance: WARFARIN
     Dosage: 5 MG, DAILY
     Route: 048

REACTIONS (2)
  - Neurotoxicity [Recovered/Resolved]
  - Myoclonus [Recovered/Resolved]
